FAERS Safety Report 8825242 (Version 2)
Quarter: 2015Q1

REPORT INFORMATION
  Report Type: Report from Study
  Country: US (occurrence: US)
  Receive Date: 20121004
  Receipt Date: 20150121
  Transmission Date: 20150721
  Serious: Yes (Death, Other)
  Sender: FDA-Public Use
  Company Number: US-ROCHE-1133020

PATIENT
  Sex: Male
  Weight: 234 kg

DRUGS (7)
  1. VINCRISTIN [Concomitant]
     Active Substance: VINCRISTINE
  2. RITUXAN [Suspect]
     Active Substance: RITUXIMAB
     Indication: DIFFUSE LARGE B-CELL LYMPHOMA
     Route: 042
     Dates: start: 20011101
  3. PREDNISONE. [Concomitant]
     Active Substance: PREDNISONE
  4. RITUXAN [Suspect]
     Active Substance: RITUXIMAB
     Indication: OFF LABEL USE
  5. CYCLOPHOSPHAMIDE. [Concomitant]
     Active Substance: CYCLOPHOSPHAMIDE
  6. ALTACE [Concomitant]
     Active Substance: RAMIPRIL
     Indication: HYPERTENSION
  7. HYDROXYDAUNORUBICIN [Concomitant]
     Active Substance: DOXORUBICIN

REACTIONS (6)
  - Flank pain [Unknown]
  - Dyspnoea [Unknown]
  - Urinary tract infection [Unknown]
  - Fatigue [Unknown]
  - Death [Fatal]
  - Lymphadenopathy [Unknown]
